FAERS Safety Report 14358632 (Version 2)
Quarter: 2018Q2

REPORT INFORMATION
  Report Type: Spontaneous
  Country: US (occurrence: US)
  Receive Date: 20180105
  Receipt Date: 20180404
  Transmission Date: 20180711
  Serious: No
  Sender: FDA-Public Use
  Company Number: US-SA-2017SA239620

PATIENT
  Age: 77 Year
  Sex: Female

DRUGS (3)
  1. DUPIXENT [Suspect]
     Active Substance: DUPILUMAB
     Indication: DERMATITIS ATOPIC
     Route: 058
     Dates: start: 20171013
  2. DESONIDE. [Concomitant]
     Active Substance: DESONIDE
     Route: 065
  3. DUPIXENT [Suspect]
     Active Substance: DUPILUMAB
     Indication: DERMATITIS ATOPIC
     Route: 058
     Dates: start: 20171013

REACTIONS (10)
  - Condition aggravated [Unknown]
  - Lacrimation increased [Recovering/Resolving]
  - Dry skin [Unknown]
  - Therapeutic response decreased [Unknown]
  - Eye discharge [Recovering/Resolving]
  - Cataract [Unknown]
  - Vision blurred [Unknown]
  - Eye pain [Recovering/Resolving]
  - Eye pruritus [Recovering/Resolving]
  - Oral herpes [Recovered/Resolved]

NARRATIVE: CASE EVENT DATE: 201710
